FAERS Safety Report 5167091-4 (Version None)
Quarter: 2006Q4

REPORT INFORMATION
  Report Type: 
  Country: None (occurrence: None)
  Receive Date: 20061207
  Receipt Date: 20061204
  Transmission Date: 20070319
  Serious: Yes (Other)
  Sender: FDA-Public Use
  Company Number: US-GLAXOSMITHKLINE-A0630353A

PATIENT
  Sex: Male

DRUGS (2)
  1. SENSODYNE-F [Suspect]
     Indication: DRUG USE FOR UNKNOWN INDICATION
  2. PREDNISONE TAB [Concomitant]
     Indication: BACK INJURY

REACTIONS (10)
  - GASTROINTESTINAL DYSPLASIA [None]
  - LEUKOPLAKIA [None]
  - LICHEN PLANUS [None]
  - LIP AND/OR ORAL CAVITY CANCER [None]
  - MOUTH ULCERATION [None]
  - ORAL MUCOSAL DISCOLOURATION [None]
  - STOMATITIS [None]
  - TONGUE DISORDER [None]
  - TONGUE DYSPLASIA [None]
  - TONGUE NEOPLASM MALIGNANT STAGE UNSPECIFIED [None]
